FAERS Safety Report 9144632 (Version 2)
Quarter: 2013Q2

REPORT INFORMATION
  Report Type: Report from Study
  Country: NL (occurrence: NL)
  Receive Date: 20130306
  Receipt Date: 20130425
  Transmission Date: 20140414
  Serious: Yes (Hospitalization)
  Sender: FDA-Public Use
  Company Number: NL-ROCHE-1195974

PATIENT
  Age: 75 Year
  Sex: Male
  Weight: 84 kg

DRUGS (3)
  1. RITUXIMAB [Suspect]
     Indication: MALIGNANT LYMPHOID NEOPLASM
     Dosage: LAST DOSE PRIORTO EVENT ON 24/DEC/2012
     Route: 042
     Dates: start: 20121023
  2. ACETYLSALICYLIC ACID [Concomitant]
     Indication: CORONARY ARTERY BYPASS
     Dosage: DATE OF LAST DOSE PRIORTO EVENT 11/FEB/2013
     Route: 048
     Dates: start: 2009
  3. CRESTOR [Concomitant]
     Indication: DYSLIPIDAEMIA
     Dosage: DATE OF LAST DOSE PRIORTO EVENT 11/FEB/2013
     Route: 065
     Dates: start: 2009

REACTIONS (2)
  - Peptic ulcer [Recovered/Resolved]
  - Oesophageal candidiasis [Recovered/Resolved]
